FAERS Safety Report 5884525-8 (Version None)
Quarter: 2008Q3

REPORT INFORMATION
  Report Type: 
  Country: None (occurrence: None)
  Receive Date: 20080911
  Receipt Date: 20080904
  Transmission Date: 20090109
  Serious: Yes (Other)
  Sender: FDA-Public Use
  Company Number: 2008JP002427

PATIENT
  Age: 59 Year
  Sex: Female
  Weight: 52.2 kg

DRUGS (2)
  1. FUNGUARD(MICAFUNGIN) INJECTION [Suspect]
     Dosage: 150 MG, IV NOS
     Route: 042
     Dates: start: 20080514, end: 20080518
  2. METHOTREXATE [Suspect]
     Indication: BONE MARROW FAILURE
     Dosage: 6 MG, WEEKLY, ORAL
     Route: 048
     Dates: start: 20080501

REACTIONS (1)
  - PANCYTOPENIA [None]
